FAERS Safety Report 5518867-2 (Version None)
Quarter: 2007Q4

REPORT INFORMATION
  Report Type: 
  Country: None (occurrence: None)
  Receive Date: 20071113
  Receipt Date: 20071029
  Transmission Date: 20080405
  Serious: Yes (Hospitalization)
  Sender: FDA-Public Use
  Company Number: B0493714A

PATIENT
  Age: 29 Year
  Sex: Female

DRUGS (3)
  1. PAROXETINE HCL [Suspect]
     Indication: MAJOR DEPRESSION
     Dosage: ORAL
     Route: 048
  2. FLUVOXAMINE MALEATE [Suspect]
     Indication: MAJOR DEPRESSION
     Dosage: ORAL
     Route: 048
  3. VALPROATE SODIUM [Concomitant]

REACTIONS (9)
  - ABNORMAL BEHAVIOUR [None]
  - ACTIVATION SYNDROME [None]
  - AFFECT LABILITY [None]
  - ALCOHOL USE [None]
  - AMNESIA [None]
  - DRUG INTERACTION [None]
  - HYPOMANIA [None]
  - IMPULSIVE BEHAVIOUR [None]
  - MANIA [None]
